FAERS Safety Report 11105484 (Version 1)
Quarter: 2015Q2

REPORT INFORMATION
  Report Type: Spontaneous
  Country: US (occurrence: US)
  Receive Date: 20150512
  Receipt Date: 20150512
  Transmission Date: 20150821
  Serious: Yes (Other)
  Sender: FDA-Public Use
  Company Number: PHHY2015US053276

PATIENT
  Age: 65 Year
  Sex: Male

DRUGS (12)
  1. HALOPERIDOL. [Concomitant]
     Active Substance: HALOPERIDOL
     Indication: DEMENTIA ALZHEIMER^S TYPE
     Route: 065
  2. MIRTAZAPINE. [Concomitant]
     Active Substance: MIRTAZAPINE
     Indication: ABNORMAL BEHAVIOUR
  3. HALOPERIDOL. [Concomitant]
     Active Substance: HALOPERIDOL
     Indication: EMOTIONAL DISORDER
  4. MIRTAZAPINE. [Concomitant]
     Active Substance: MIRTAZAPINE
     Indication: EMOTIONAL DISORDER
  5. RISPERIDONE. [Concomitant]
     Active Substance: RISPERIDONE
     Indication: DEMENTIA ALZHEIMER^S TYPE
     Route: 065
  6. HALOPERIDOL. [Concomitant]
     Active Substance: HALOPERIDOL
     Indication: ABNORMAL BEHAVIOUR
  7. VALPROATE SODIUM. [Suspect]
     Active Substance: VALPROATE SODIUM
     Indication: EMOTIONAL DISORDER
     Dosage: 250 MG, QD
     Route: 048
  8. RISPERIDONE. [Concomitant]
     Active Substance: RISPERIDONE
     Indication: ABNORMAL BEHAVIOUR
  9. RISPERIDONE. [Concomitant]
     Active Substance: RISPERIDONE
     Indication: EMOTIONAL DISORDER
  10. VALPROATE SODIUM. [Suspect]
     Active Substance: VALPROATE SODIUM
     Indication: ABNORMAL BEHAVIOUR
     Dosage: 250 MG, BID
     Route: 048
  11. SIMVASTATIN. [Concomitant]
     Active Substance: SIMVASTATIN
     Indication: PRODUCT USED FOR UNKNOWN INDICATION
     Route: 065
  12. MIRTAZAPINE. [Concomitant]
     Active Substance: MIRTAZAPINE
     Indication: DEMENTIA ALZHEIMER^S TYPE
     Route: 065

REACTIONS (2)
  - Fall [Recovered/Resolved]
  - Gait disturbance [Recovered/Resolved]
